FAERS Safety Report 10168618 (Version 3)
Quarter: 2014Q2

REPORT INFORMATION
  Report Type: Spontaneous
  Country: US (occurrence: US)
  Receive Date: 20140513
  Receipt Date: 20140523
  Transmission Date: 20141212
  Serious: Yes (Other)
  Sender: FDA-Public Use
  Company Number: US-JNJFOC-20131200088

PATIENT
  Sex: Male

DRUGS (2)
  1. RISPERDAL [Suspect]
     Indication: TOURETTE^S DISORDER
     Route: 048
     Dates: start: 2003, end: 201211
  2. RISPERDAL [Suspect]
     Indication: ATTENTION DEFICIT/HYPERACTIVITY DISORDER
     Route: 048
     Dates: start: 2003, end: 201211

REACTIONS (8)
  - Glucose tolerance impaired [Unknown]
  - Hyperinsulinaemia [Unknown]
  - Mood swings [Unknown]
  - Gynaecomastia [Unknown]
  - Anger [Unknown]
  - Stereotypy [Unknown]
  - Off label use [Unknown]
  - Obesity [Unknown]
